FAERS Safety Report 23454354 (Version 9)
Quarter: 2024Q3

REPORT INFORMATION
  Report Type: Spontaneous
  Country: US (occurrence: US)
  Receive Date: 20240130
  Receipt Date: 20240808
  Transmission Date: 20241017
  Serious: Yes (Other)
  Sender: BRISTOL MYERS SQUIBB
  Company Number: US-BRISTOL-MYERS SQUIBB COMPANY-2024-011870

PATIENT
  Age: 68 Year
  Sex: Female

DRUGS (5)
  1. LENALIDOMIDE [Suspect]
     Active Substance: LENALIDOMIDE
     Indication: Plasma cell myeloma
     Dosage: TAKE 1 CAPSULE (10MG) WHOLE BY MOUTH WITH WATER EVERY DAY FOR 21 DAYS, THEN OFF 7 DAYS. DO NOT BREAK
     Route: 048
  2. LENALIDOMIDE [Suspect]
     Active Substance: LENALIDOMIDE
     Dosage: TAKE 1 CAPSULE (10MG) WHOLE BY MOUTH WITH WATER EVERY DAY FOR 21 DAYS, THEN OFF 7 DAYS. DO NOT BREAK
     Route: 048
  3. LENALIDOMIDE [Suspect]
     Active Substance: LENALIDOMIDE
     Dosage: TAKE 1 CAPSULE (10MG) WHOLE BY MOUTH WITH WATER EVERY DAY FOR 21 DAYS, THEN OFF 7 DAYS. DO NOT BREAK
     Route: 048
  4. LENALIDOMIDE [Suspect]
     Active Substance: LENALIDOMIDE
     Dosage: TAKE 1 CAPSULE (10MG) WHOLE BY MOUTH WITH WATER EVERY DAY FOR 21 DAYS, THEN OFF 7 DAYS. DO NOT BREAK
     Route: 048
  5. LENALIDOMIDE [Suspect]
     Active Substance: LENALIDOMIDE
     Dosage: TAKE 1 CAPSULE BY MOUTH ON DAYS 1-21 FOLLOWED BY 7 DAYS OFF. TAKE WHOLE W/WATER. DON^T BREAK, CHEW O
     Route: 048

REACTIONS (9)
  - Diarrhoea [Not Recovered/Not Resolved]
  - Constipation [Recovering/Resolving]
  - Toothache [Recovering/Resolving]
  - Gastrointestinal disorder [Recovering/Resolving]
  - Neuropathy peripheral [Not Recovered/Not Resolved]
  - Fatigue [Unknown]
  - Product dose omission in error [Unknown]
  - Balance disorder [Not Recovered/Not Resolved]
  - Dry eye [Not Recovered/Not Resolved]

NARRATIVE: CASE EVENT DATE: 20240507
